FAERS Safety Report 6339031-3 (Version None)
Quarter: 2009Q3

REPORT INFORMATION
  Report Type: 
  Country: None (occurrence: None)
  Receive Date: 20090831
  Receipt Date: 20090723
  Transmission Date: 20100115
  Serious: No
  Sender: FDA-Public Use
  Company Number: MC200900262

PATIENT

DRUGS (2)
  1. CLEVIPREX [Suspect]
     Indication: BLOOD PRESSURE SYSTOLIC INCREASED
  2. LABETALOL HCL [Concomitant]

REACTIONS (1)
  - BLOOD PRESSURE INADEQUATELY CONTROLLED [None]
